FAERS Safety Report 16230333 (Version 1)
Quarter: 2019Q2

REPORT INFORMATION
  Report Type: Spontaneous
  Country: US (occurrence: US)
  Receive Date: 20190423
  Receipt Date: 20190423
  Transmission Date: 20190711
  Serious: Yes (Other)
  Sender: FDA-Public Use
  Company Number: US-ASTRAZENECA-2019SE58620

PATIENT

DRUGS (2)
  1. SAXAGLIPTIN [Suspect]
     Active Substance: SAXAGLIPTIN
     Route: 048
  2. XELJANZ XR [Concomitant]
     Active Substance: TOFACITINIB CITRATE

REACTIONS (1)
  - Pancreatitis [Unknown]
